FAERS Safety Report 6176580-5 (Version None)
Quarter: 2009Q2

REPORT INFORMATION
  Report Type: 
  Country: None (occurrence: None)
  Receive Date: 20090501
  Receipt Date: 20090423
  Transmission Date: 20091009
  Serious: Yes (Other)
  Sender: FDA-Public Use
  Company Number: US-ELI_LILLY_AND_COMPANY-US200904005330

PATIENT
  Sex: Male

DRUGS (7)
  1. BYETTA [Suspect]
     Indication: TYPE 2 DIABETES MELLITUS
     Dosage: 10 UG, 2/D
     Route: 058
     Dates: start: 20070801
  2. COREG CR [Concomitant]
     Dosage: 40 MG, DAILY (1/D)
     Route: 065
  3. EXFORGE                            /01634301/ [Concomitant]
     Dosage: UNK, DAILY (1/D)
     Route: 065
  4. VYTORIN [Concomitant]
     Dosage: UNK, DAILY (1/D)
     Route: 065
  5. VASOTEC [Concomitant]
     Dosage: 10 MG, DAILY (1/D)
     Route: 065
  6. HYDROCHLOROTHIAZIDE [Concomitant]
     Dosage: 25 MG, DAILY (1/D)
     Route: 065
  7. DIABETA [Concomitant]
     Dosage: 10 MG, 2/D
     Route: 065

REACTIONS (2)
  - DIARRHOEA [None]
  - PANCREATITIS [None]
